FAERS Safety Report 4807593-0 (Version None)
Quarter: 2005Q4

REPORT INFORMATION
  Report Type: 
  Country: None (occurrence: None)
  Receive Date: 20051024
  Receipt Date: 20050927
  Transmission Date: 20060501
  Serious: Yes (Hospitalization)
  Sender: FDA-Public Use
  Company Number: FR-SANOFI-SYNTHELABO-A02200502535

PATIENT
  Age: 82 Year
  Sex: Female

DRUGS (14)
  1. STILNOX [Suspect]
     Indication: DRUG USE FOR UNKNOWN INDICATION
     Route: 048
     Dates: start: 20050711, end: 20050802
  2. LEXOMIL [Suspect]
     Indication: DRUG USE FOR UNKNOWN INDICATION
     Route: 048
     Dates: start: 20050711, end: 20050802
  3. GENTAMYCIN SULFATE [Suspect]
     Indication: DRUG USE FOR UNKNOWN INDICATION
     Route: 042
     Dates: start: 20050715, end: 20050721
  4. BACTRIM DS [Suspect]
     Indication: DRUG USE FOR UNKNOWN INDICATION
     Dosage: SULFAMETHOXAZOLE : 1600 MG+TRIMETHOPRIME : 320 MG
     Route: 048
     Dates: start: 20050713, end: 20050802
  5. TRIATEC [Suspect]
     Indication: DRUG USE FOR UNKNOWN INDICATION
     Route: 048
     Dates: start: 20050714, end: 20050721
  6. CIBADREX [Suspect]
     Indication: DRUG USE FOR UNKNOWN INDICATION
     Dosage: UNK
     Route: 048
     Dates: end: 20050711
  7. CIBADREX [Suspect]
     Dosage: HYDROCHLORTHIAZIDE : 12.5 MG+BENAZEPRIL : 10 MG
     Route: 048
     Dates: start: 20050721, end: 20050802
  8. ZOCOR [Concomitant]
     Indication: DRUG USE FOR UNKNOWN INDICATION
     Dosage: UNK
     Route: 048
     Dates: end: 20050711
  9. ZOCOR [Concomitant]
     Dosage: UNK
     Route: 048
     Dates: start: 20050721, end: 20050802
  10. ENDOTELON [Concomitant]
     Indication: DRUG USE FOR UNKNOWN INDICATION
     Dosage: UNK
     Route: 048
     Dates: end: 20050711
  11. ENDOTELON [Concomitant]
     Dosage: UNK
     Route: 048
     Dates: start: 20050721, end: 20050802
  12. ART 50 [Concomitant]
     Indication: DRUG USE FOR UNKNOWN INDICATION
     Dosage: UNK
     Route: 048
     Dates: end: 20050711
  13. ART 50 [Concomitant]
     Dosage: UNK
     Route: 048
     Dates: start: 20050721, end: 20050802
  14. LOVENOX [Concomitant]
     Indication: DRUG USE FOR UNKNOWN INDICATION
     Dosage: UNK
     Route: 030
     Dates: start: 20050712, end: 20050721

REACTIONS (3)
  - BLOOD CREATININE INCREASED [None]
  - NEPHROPATHY [None]
  - RENAL FAILURE ACUTE [None]
